FAERS Safety Report 5602219-0 (Version None)
Quarter: 2008Q1

REPORT INFORMATION
  Report Type: 
  Country: None (occurrence: None)
  Receive Date: 20080125
  Receipt Date: 20080115
  Transmission Date: 20080703
  Serious: Yes (Other)
  Sender: FDA-Public Use
  Company Number: US-ASTRAZENECA-2006UW27453

PATIENT
  Age: 554 Month
  Sex: Female
  Weight: 99.1 kg

DRUGS (15)
  1. SEROQUEL [Suspect]
     Indication: SCHIZOPHRENIA, PARANOID TYPE
     Dosage: 200-600 MG
     Route: 048
     Dates: start: 20040201, end: 20060101
  2. SEROQUEL [Suspect]
     Indication: BIPOLAR DISORDER
     Dosage: 200-600 MG
     Route: 048
     Dates: start: 20040201, end: 20060101
  3. SEROQUEL [Suspect]
     Indication: OBSESSIVE-COMPULSIVE DISORDER
     Dosage: 200-600 MG
     Route: 048
     Dates: start: 20040201, end: 20060101
  4. SEROQUEL [Suspect]
     Dosage: 200-600 MG
     Route: 048
     Dates: start: 20030801, end: 20060401
  5. SEROQUEL [Suspect]
     Dosage: 200-600 MG
     Route: 048
     Dates: start: 20030801, end: 20060401
  6. SEROQUEL [Suspect]
     Dosage: 200-600 MG
     Route: 048
     Dates: start: 20030801, end: 20060401
  7. ABILIFY [Concomitant]
     Dosage: 10-30 MG
     Dates: start: 20050501
  8. ABILIFY [Concomitant]
     Dates: start: 20050501
  9. GEODON [Concomitant]
     Dates: start: 20060601
  10. RISPERDAL [Concomitant]
     Dosage: 1-3 MG
     Dates: start: 20040501, end: 20050501
  11. RISPERDAL [Concomitant]
     Dates: start: 20040601
  12. THORAZINE [Concomitant]
  13. ZYPREXA [Concomitant]
  14. LEXAPRO [Concomitant]
     Dosage: 10-20 MG
     Dates: start: 20050301
  15. LEXAPRO [Concomitant]
     Dates: start: 20050301

REACTIONS (6)
  - BLOOD TRIGLYCERIDES INCREASED [None]
  - CARDIOMEGALY [None]
  - DIABETES MELLITUS [None]
  - HEPATOMEGALY [None]
  - NEUROLEPTIC MALIGNANT SYNDROME [None]
  - WEIGHT INCREASED [None]
